FAERS Safety Report 9354547 (Version 2)
Quarter: 2013Q3

REPORT INFORMATION
  Report Type: Spontaneous
  Country: US (occurrence: US)
  Receive Date: 20130618
  Receipt Date: 20130828
  Transmission Date: 20140515
  Serious: No
  Sender: FDA-Public Use
  Company Number: US-PFIZER INC-2013179487

PATIENT
  Age: 56 Year
  Sex: Female

DRUGS (4)
  1. XELJANZ [Suspect]
     Indication: RHEUMATOID ARTHRITIS
     Dosage: 5 MG, 2X/DAY
     Route: 048
     Dates: start: 20130403
  2. XELJANZ [Suspect]
     Dosage: 5 MG, 2X/DAY
     Route: 048
  3. PREDNISONE [Concomitant]
     Dosage: 20 MG
  4. TYLENOL [Concomitant]
     Dosage: 325 MG CAPLET

REACTIONS (9)
  - Sinusitis [Unknown]
  - Vulvovaginal mycotic infection [Unknown]
  - Hypoaesthesia [Unknown]
  - Paraesthesia [Unknown]
  - Weight fluctuation [Unknown]
  - Breast tenderness [Unknown]
  - Dyspepsia [Unknown]
  - Abdominal discomfort [Unknown]
  - Drug dose omission [Unknown]
